FAERS Safety Report 6685887-4 (Version None)
Quarter: 2010Q2

REPORT INFORMATION
  Report Type: 
  Country: None (occurrence: None)
  Receive Date: 20100419
  Receipt Date: 20100408
  Transmission Date: 20101027
  Serious: Yes (Hospitalization)
  Sender: FDA-Public Use
  Company Number: FR-TEVA-230472ISR

PATIENT
  Sex: Male

DRUGS (18)
  1. FLUOROURACIL [Suspect]
     Indication: RECTAL CANCER
     Route: 042
     Dates: start: 20090525, end: 20091005
  2. IRINOTECAN HYDROCHLORIDE [Suspect]
     Indication: RECTAL CANCER
     Route: 042
     Dates: start: 20090525, end: 20091005
  3. BEVACIZUMAB [Suspect]
     Indication: RECTAL CANCER
     Route: 042
     Dates: start: 20090525, end: 20091005
  4. CALCIUM LEVOFOLINATE [Suspect]
     Indication: RECTAL CANCER
     Route: 058
     Dates: start: 20090525, end: 20091005
  5. METHYLPREDNISOLONE [Suspect]
     Indication: NAUSEA
     Route: 042
     Dates: start: 20090525, end: 20091005
  6. APREPITANT [Suspect]
     Indication: NAUSEA
     Route: 048
     Dates: start: 20090525, end: 20091005
  7. APREPITANT [Suspect]
     Route: 048
     Dates: start: 20090525, end: 20091005
  8. ONDANSETRON HYDROCHLORIDE [Suspect]
     Indication: NAUSEA
     Route: 042
     Dates: start: 20090525, end: 20091005
  9. ATROPINE [Suspect]
     Indication: NAUSEA
     Route: 058
     Dates: start: 20090525, end: 20091005
  10. ZOLPIDEM [Concomitant]
  11. PAROXETINE HCL [Concomitant]
  12. POTASSIUM CHLORIDE [Concomitant]
  13. PARACETAMOL [Concomitant]
  14. RACECADOTRIL (TIORFAN) [Concomitant]
  15. METOPIMAZINE [Concomitant]
  16. TRIMEBUTINE MALEATE [Concomitant]
  17. PANCREATIN [Concomitant]
  18. LOPERAMIDE HYDROCHLORIDE [Concomitant]

REACTIONS (3)
  - ASTHENIA [None]
  - HEADACHE [None]
  - PARAESTHESIA [None]
